FAERS Safety Report 7076474-7 (Version None)
Quarter: 2010Q4

REPORT INFORMATION
  Report Type: 
  Country: None (occurrence: None)
  Receive Date: 20101101
  Receipt Date: 20101022
  Transmission Date: 20110411
  Serious: Yes (Hospitalization)
  Sender: FDA-Public Use
  Company Number: JP-BRISTOL-MYERS SQUIBB COMPANY-15350051

PATIENT
  Age: 64 Year
  Sex: Male

DRUGS (4)
  1. ABILIFY [Suspect]
     Indication: SCHIZOPHRENIA
     Route: 048
     Dates: start: 20101005, end: 20101012
  2. DEPAS [Concomitant]
     Dates: start: 20100831
  3. POLARAMINE [Concomitant]
     Dates: start: 20101012
  4. SELBEX [Concomitant]
     Dates: start: 20080826

REACTIONS (2)
  - INSOMNIA [None]
  - SCHIZOPHRENIA [None]
